FAERS Safety Report 7793295 (Version 2)
Quarter: 2013Q1

REPORT INFORMATION
  Report Type: Spontaneous
  Country: US (occurrence: US)
  Receive Date: 20110131
  Receipt Date: 20130129
  Transmission Date: 20140127
  Serious: No
  Sender: FDA-Public Use
  Company Number: US-ABBOTT-10P-163-0691906-00

PATIENT
  Age: 67 Year
  Sex: Male

DRUGS (1)
  1. LEUPROLIDE ACETATE [Suspect]
     Indication: PROSTATE CANCER

REACTIONS (3)
  - Follicular mucinosis [Recovered/Resolved]
  - Mycosis fungoides [Recovered/Resolved]
  - Drug eruption [Recovered/Resolved]
